FAERS Safety Report 6179202-2 (Version None)
Quarter: 2009Q2

REPORT INFORMATION
  Report Type: 
  Country: None (occurrence: None)
  Receive Date: 20090505
  Receipt Date: 20090429
  Transmission Date: 20091009
  Serious: Yes (Hospitalization)
  Sender: FDA-Public Use
  Company Number: JP-SANOFI-SYNTHELABO-A01200903186

PATIENT
  Sex: Male

DRUGS (9)
  1. MAGLAX [Concomitant]
     Dosage: UNK
     Dates: start: 20081019, end: 20081105
  2. TAGAMET [Concomitant]
     Dosage: UNK
     Dates: start: 20081017, end: 20081105
  3. CRESTOR [Concomitant]
     Dosage: UNK
     Dates: start: 20081006, end: 20081105
  4. OXYCONTIN [Concomitant]
     Dosage: UNK
     Dates: start: 20081030, end: 20081105
  5. KYTRIL [Concomitant]
     Dosage: UNK
     Dates: start: 20081015, end: 20081016
  6. LEUCOVORIN CALCIUM [Concomitant]
     Indication: SMALL INTESTINE CARCINOMA METASTATIC
     Dosage: UNK
     Dates: start: 20081015, end: 20081104
  7. AVASTIN [Suspect]
     Indication: SMALL INTESTINE CARCINOMA METASTATIC
     Route: 041
     Dates: start: 20081104, end: 20081104
  8. FLUOROURACIL [Suspect]
     Indication: SMALL INTESTINE CARCINOMA METASTATIC
     Dosage: ONCE ON DAY 1
     Route: 042
     Dates: start: 20081104, end: 20081104
  9. ELPLAT [Suspect]
     Indication: SMALL INTESTINE CARCINOMA METASTATIC
     Dosage: ONCE ON DAY 1
     Route: 041
     Dates: start: 20081104, end: 20081104

REACTIONS (1)
  - GASTROINTESTINAL PERFORATION [None]
